FAERS Safety Report 10172135 (Version 2)
Quarter: 2014Q2

REPORT INFORMATION
  Report Type: Report from Study
  Country: BR (occurrence: BR)
  Receive Date: 20140515
  Receipt Date: 20140607
  Transmission Date: 20141212
  Serious: Yes (Other)
  Sender: FDA-Public Use
  Company Number: PHHY2014BR057126

PATIENT
  Age: 43 Year
  Sex: Female

DRUGS (3)
  1. OMNITROPE [Suspect]
     Indication: WEIGHT DECREASED
     Dosage: 0.3 MG, QD
     Route: 058
     Dates: start: 20140429
  2. OMNITROPE [Suspect]
     Indication: OFF LABEL USE
  3. NANDROLONE [Concomitant]

REACTIONS (9)
  - Spondylolisthesis [Not Recovered/Not Resolved]
  - Condition aggravated [Not Recovered/Not Resolved]
  - Sciatica [Not Recovered/Not Resolved]
  - Pain in extremity [Not Recovered/Not Resolved]
  - Neck pain [Not Recovered/Not Resolved]
  - Asthenia [Not Recovered/Not Resolved]
  - Dyspnoea [Not Recovered/Not Resolved]
  - Insomnia [Not Recovered/Not Resolved]
  - Weight decreased [Not Recovered/Not Resolved]
